FAERS Safety Report 7096762-8 (Version None)
Quarter: 2010Q4

REPORT INFORMATION
  Report Type: 
  Country: None (occurrence: None)
  Receive Date: 20101111
  Receipt Date: 20091113
  Transmission Date: 20110411
  Serious: No
  Sender: FDA-Public Use
  Company Number: US-KINGPHARMUSA00001-K200901456

PATIENT
  Age: 53 Year
  Sex: Female
  Weight: 71.655 kg

DRUGS (3)
  1. FLECTOR [Suspect]
     Indication: SWELLING
     Dosage: 1/4 OF A PATCH EVERY 12 HRS
     Route: 061
     Dates: start: 20091106
  2. GLUCOSAMINE [Concomitant]
     Indication: SUPPLEMENTATION THERAPY
     Dosage: UNK
     Route: 048
  3. CALCIUM [Concomitant]
     Indication: SUPPLEMENTATION THERAPY
     Dosage: UNK
     Route: 048

REACTIONS (1)
  - RASH MACULAR [None]
